FAERS Safety Report 6168850-1 (Version None)
Quarter: 2009Q2

REPORT INFORMATION
  Report Type: 
  Country: None (occurrence: None)
  Receive Date: 20090427
  Receipt Date: 20090424
  Transmission Date: 20091009
  Serious: Yes (Other)
  Sender: FDA-Public Use
  Company Number: IT-ROXANE LABORATORIES, INC.-2009-RO-00405RO

PATIENT
  Age: 37 Year
  Sex: Male

DRUGS (8)
  1. METHOTREXATE [Suspect]
     Indication: RHEUMATOID ARTHRITIS
  2. PREDNISONE [Suspect]
     Dosage: 5MG
  3. INFLIXIMAB [Suspect]
     Indication: RHEUMATOID ARTHRITIS
  4. ISONIAZID [Concomitant]
     Indication: PULMONARY TUBERCULOSIS
  5. RIFAMPICIN [Concomitant]
     Indication: PULMONARY TUBERCULOSIS
  6. ETAMBUTAL [Concomitant]
     Indication: PULMONARY TUBERCULOSIS
  7. PYRAZINAMIDE [Concomitant]
     Indication: PULMONARY TUBERCULOSIS
  8. HYDROXYCHLOROQUINE SULFATE [Concomitant]
     Indication: PULMONARY TUBERCULOSIS
     Dosage: 400MG

REACTIONS (1)
  - PULMONARY TUBERCULOSIS [None]
